FAERS Safety Report 6086556-4 (Version None)
Quarter: 2009Q1

REPORT INFORMATION
  Report Type: 
  Country: None (occurrence: None)
  Receive Date: 20090217
  Receipt Date: 20090202
  Transmission Date: 20090719
  Serious: Yes (Death)
  Sender: FDA-Public Use
  Company Number: CHPA2009US01931

PATIENT
  Age: 60 Year
  Sex: Male

DRUGS (3)
  1. DIPHENHYDRAMINE HYDROCHLORIDE [Suspect]
     Dosage: ORAL
     Route: 048
  2. HYDROMORPHONE HCL [Suspect]
  3. FENTANYL [Suspect]

REACTIONS (1)
  - MEDICATION ERROR [None]
